FAERS Safety Report 24409420 (Version 1)
Quarter: 2024Q4

REPORT INFORMATION
  Report Type: Spontaneous
  Country: GB (occurrence: GB)
  Receive Date: 20241008
  Receipt Date: 20241008
  Transmission Date: 20250114
  Serious: Yes (Other)
  Sender: NOVO NORDISK
  Company Number: None

PATIENT
  Age: 10 Year
  Sex: Female

DRUGS (2)
  1. NORDITROPIN [Suspect]
     Active Substance: SOMATROPIN
     Indication: Turner^s syndrome
     Dosage: UNK
  2. NORDITROPIN [Suspect]
     Active Substance: SOMATROPIN
     Dosage: UNK ( RESTARTED)
     Dates: start: 20240425

REACTIONS (3)
  - Wheezing [Recovered/Resolved]
  - Chest pain [Recovered/Resolved]
  - Pharyngeal swelling [Recovered/Resolved]

NARRATIVE: CASE EVENT DATE: 20240501
